FAERS Safety Report 18356886 (Version 2)
Quarter: 2020Q4

REPORT INFORMATION
  Report Type: Report from Study
  Country: CA (occurrence: CA)
  Receive Date: 20201007
  Receipt Date: 20201009
  Transmission Date: 20210114
  Serious: Yes (Other)
  Sender: FDA-Public Use
  Company Number: CA-JNJFOC-20200952538

PATIENT
  Age: 23 Year
  Sex: Female

DRUGS (3)
  1. STELARA [Suspect]
     Active Substance: USTEKINUMAB
  2. NUVARING [Suspect]
     Active Substance: ETHINYL ESTRADIOL\ETONOGESTREL
     Indication: CONTRACEPTION
     Route: 065
     Dates: start: 20200921
  3. STELARA [Suspect]
     Active Substance: USTEKINUMAB
     Indication: CROHN^S DISEASE
     Route: 058
     Dates: start: 20181114

REACTIONS (4)
  - Rash [Recovering/Resolving]
  - Crohn^s disease [Recovering/Resolving]
  - Cholelithiasis [Unknown]
  - Stress [Unknown]

NARRATIVE: CASE EVENT DATE: 202009
